FAERS Safety Report 9306336 (Version 2)
Quarter: 2013Q2

REPORT INFORMATION
  Report Type: Spontaneous
  Country: US (occurrence: None)
  Receive Date: 20130507
  Receipt Date: 20130528
  Transmission Date: 20140414
  Serious: Yes (Hospitalization)
  Sender: FDA-Public Use
  Company Number: 2013PROUSA02777

PATIENT
  Age: 75 Year
  Sex: Male

DRUGS (3)
  1. PROVENGE [Suspect]
     Indication: PROSTATE CANCER METASTATIC
     Route: 042
     Dates: start: 20130321, end: 20130321
  2. ASPIRIN (ACETYLSALICYLIC ACID) [Concomitant]
  3. BRILINTA (TICAGRELOR) [Concomitant]

REACTIONS (5)
  - Haemoptysis [None]
  - Bronchitis [None]
  - Anaemia [None]
  - Anaemia of malignant disease [None]
  - Acute myocardial infarction [None]
